FAERS Safety Report 22087666 (Version 1)
Quarter: 2023Q1

REPORT INFORMATION
  Report Type: Report from Study
  Country: CA (occurrence: CA)
  Receive Date: 20230313
  Receipt Date: 20230313
  Transmission Date: 20230418
  Serious: Yes (Other)
  Sender: FDA-Public Use
  Company Number: CA-ABBVIE-4335990

PATIENT
  Sex: Female

DRUGS (1)
  1. HUMIRA [Suspect]
     Active Substance: ADALIMUMAB
     Indication: Crohn^s disease
     Route: 058
     Dates: start: 20170523

REACTIONS (5)
  - Ileocaecal resection [Unknown]
  - Anal fistula [Unknown]
  - Ovarian abscess [Unknown]
  - Postoperative abscess [Unknown]
  - Fistula [Unknown]
